FAERS Safety Report 8802983 (Version 5)
Quarter: 2013Q3

REPORT INFORMATION
  Report Type: Report from Study
  Country: BR (occurrence: BR)
  Receive Date: 20120924
  Receipt Date: 20130919
  Transmission Date: 20140515
  Serious: Yes (Other)
  Sender: FDA-Public Use
  Company Number: PHHY2012BR082076

PATIENT
  Age: 40 Year
  Sex: Female
  Weight: 64 kg

DRUGS (3)
  1. GILENYA [Suspect]
     Indication: MULTIPLE SCLEROSIS
     Dosage: 0.5 MG, QD
     Route: 048
     Dates: start: 20120606
  2. LEVOID [Concomitant]
     Dosage: 25 MG, QD
     Route: 048
     Dates: start: 2006
  3. SALINE [Concomitant]
     Indication: HYPERSENSITIVITY

REACTIONS (5)
  - Glaucoma [Not Recovered/Not Resolved]
  - Intraocular pressure increased [Not Recovered/Not Resolved]
  - Vertigo [Unknown]
  - Blood pressure increased [Unknown]
  - Dizziness [Recovered/Resolved]
